FAERS Safety Report 19653299 (Version 2)
Quarter: 2021Q3

REPORT INFORMATION
  Report Type: Spontaneous
  Country: BE (occurrence: BE)
  Receive Date: 20210803
  Receipt Date: 20210811
  Transmission Date: 20211014
  Serious: Yes (Death, Hospitalization)
  Sender: FDA-Public Use
  Company Number: BE-ROCHE-2882729

PATIENT
  Age: 55 Year
  Sex: Female

DRUGS (4)
  1. CLEXANE [Concomitant]
     Active Substance: ENOXAPARIN SODIUM
  2. CLAFORAN [Concomitant]
     Active Substance: CEFOTAXIME SODIUM
  3. ROACTEMRA [Suspect]
     Active Substance: TOCILIZUMAB
     Indication: COVID-19
     Dosage: SHE RECEIVED ONE SHOT IV OF 8MG/KG
     Route: 065
     Dates: start: 20210420
  4. DEXAMETHASONE. [Concomitant]
     Active Substance: DEXAMETHASONE

REACTIONS (2)
  - Respiratory distress [Fatal]
  - Off label use [Fatal]

NARRATIVE: CASE EVENT DATE: 20210420
